FAERS Safety Report 7770860 (Version 4)
Quarter: 2018Q4

REPORT INFORMATION
  Report Type: Report from Study
  Country: SE (occurrence: SE)
  Receive Date: 20110124
  Receipt Date: 20181111
  Transmission Date: 20190205
  Serious: Yes (Hospitalization, Disabling, Other)
  Sender: FDA-Public Use
  Company Number: SE-AMGEN-SWESP2011003553

PATIENT
  Age: 34 Year
  Sex: Female
  Weight: 55 kg

DRUGS (9)
  1. CITODON [Concomitant]
     Active Substance: ACETAMINOPHEN\CODEINE PHOSPHATE
     Dosage: 1-2 TABLETS AS NEEDED
  2. PRONAXEN [Concomitant]
     Active Substance: NAPROXEN
     Dosage: 500 UNK,AS NEEDED
  3. OMEPRAZOL [Concomitant]
     Active Substance: OMEPRAZOLE
     Dosage: 20 MG, 1X/DAY
  4. ETANERCEPT [Suspect]
     Active Substance: ETANERCEPT
     Indication: JUVENILE IDIOPATHIC ARTHRITIS
     Dosage: 50 MG, WEEKLY
     Route: 058
     Dates: start: 20090309, end: 20101227
  5. FOLACIN [Concomitant]
     Dosage: UNK
  6. PANODIL [Concomitant]
     Active Substance: ACETAMINOPHEN
     Dosage: UNK
  7. DUOTRAV [Concomitant]
     Active Substance: TIMOLOL MALEATE\TRAVOPROST
     Dosage: UNK
  8. METHOTREXATE ORION [Concomitant]
     Active Substance: METHOTREXATE
     Dosage: 12.5 MG, QWK
     Dates: start: 200610
  9. KESTINE [Concomitant]
     Active Substance: EBASTINE
     Dosage: 10 MG, AS NEEDED

REACTIONS (2)
  - Visual impairment [Recovering/Resolving]
  - Macular oedema [Recovering/Resolving]

NARRATIVE: CASE EVENT DATE: 2010
